FAERS Safety Report 5036844-5 (Version None)
Quarter: 2006Q2

REPORT INFORMATION
  Report Type: 
  Country: None (occurrence: None)
  Receive Date: 20060609
  Receipt Date: 20060207
  Transmission Date: 20061013
  Serious: Yes (Hospitalization)
  Sender: FDA-Public Use
  Company Number: 435571

PATIENT
  Sex: Female

DRUGS (1)
  1. XENICAL [Suspect]
     Dosage: ORAL
     Route: 048

REACTIONS (2)
  - ABDOMINAL PAIN [None]
  - FLATULENCE [None]
